FAERS Safety Report 10378716 (Version 1)
Quarter: 2014Q3

REPORT INFORMATION
  Report Type: Report from Study
  Country: US (occurrence: US)
  Receive Date: 20140812
  Receipt Date: 20140812
  Transmission Date: 20150326
  Serious: Yes (Hospitalization)
  Sender: FDA-Public Use
  Company Number: US-PFIZER INC-2014220922

PATIENT
  Age: 66 Year
  Sex: Female

DRUGS (66)
  1. FLUCONAZOLE. [Suspect]
     Active Substance: FLUCONAZOLE
     Indication: CANDIDA INFECTION
     Dosage: UNK
     Dates: start: 201307, end: 201307
  2. CHLORHEXIDINE [Concomitant]
     Active Substance: CHLORHEXIDINE
  3. DILTIAZEM [Concomitant]
     Active Substance: DILTIAZEM
  4. MORPHINE [Concomitant]
     Active Substance: MORPHINE
  5. CARDIZEM [Concomitant]
     Active Substance: DILTIAZEM HYDROCHLORIDE
  6. GLIPIZIDE. [Concomitant]
     Active Substance: GLIPIZIDE
  7. ALBUMIN [Concomitant]
     Active Substance: ALBUMIN (HUMAN)
  8. MYCOPHENOLATE [Concomitant]
     Active Substance: MYCOPHENOLIC ACID
     Indication: IMMUNOSUPPRESSION
  9. MYCOPHENOLATE [Concomitant]
     Active Substance: MYCOPHENOLIC ACID
     Indication: ENZYME INDUCTION
  10. THYMOGLOBULINE [Concomitant]
     Active Substance: LAPINE T-LYMPHOCYTE IMMUNE GLOBULIN
     Indication: ENZYME INDUCTION
  11. LOSARTAN [Concomitant]
     Active Substance: LOSARTAN
  12. ACETYLSALICYLIC ACID [Concomitant]
     Active Substance: ASPIRIN
  13. FENTANYL. [Concomitant]
     Active Substance: FENTANYL
  14. NIMBEX [Concomitant]
     Active Substance: CISATRACURIUM BESYLATE
  15. TACROLIMUS. [Concomitant]
     Active Substance: TACROLIMUS
     Indication: IMMUNOSUPPRESSION
  16. HEPARIN SODIUM. [Suspect]
     Active Substance: HEPARIN SODIUM
     Dosage: UNK
     Route: 042
     Dates: start: 20130529, end: 20130531
  17. MAGNESIUM SULFATE [Concomitant]
     Active Substance: MAGNESIUM SULFATE
  18. ZOFRAN [Concomitant]
     Active Substance: ONDANSETRON HYDROCHLORIDE
  19. MANNITOL. [Concomitant]
     Active Substance: MANNITOL
  20. PHENYLEPHRINE [Concomitant]
     Active Substance: PHENYLEPHRINE\PHENYLEPHRINE HYDROCHLORIDE
  21. PREDNISONE. [Concomitant]
     Active Substance: PREDNISONE
     Indication: IMMUNOSUPPRESSION
  22. CINACALCET [Concomitant]
     Active Substance: CINACALCET
  23. CEFAZOLIN [Concomitant]
     Active Substance: CEFAZOLIN
  24. FAMOTIDINE. [Concomitant]
     Active Substance: FAMOTIDINE
  25. FUROSEMIDE. [Concomitant]
     Active Substance: FUROSEMIDE
  26. INSULIN ASPART [Concomitant]
     Active Substance: INSULIN ASPART
  27. INSULIN GLARGINE [Concomitant]
     Active Substance: INSULIN GLARGINE
  28. NEUTRA-PHOS [Concomitant]
     Active Substance: POTASSIUM PHOSPHATE, MONOBASIC\SODIUM PHOSPHATE, DIBASIC, ANHYDROUS\SODIUM PHOSPHATE, MONOBASIC, MONOHYDRATE
  29. LABETALOL [Concomitant]
     Active Substance: LABETALOL\LABETALOL HYDROCHLORIDE
  30. SENNOSIDES [Concomitant]
     Active Substance: SENNOSIDES
  31. VERSED [Concomitant]
     Active Substance: MIDAZOLAM HYDROCHLORIDE
  32. FOSAMAX [Concomitant]
     Active Substance: ALENDRONATE SODIUM
  33. METHYLPREDNISOLONE [Concomitant]
     Active Substance: METHYLPREDNISOLONE
     Indication: ENZYME INDUCTION
  34. THYMOGLOBULINE [Concomitant]
     Active Substance: LAPINE T-LYMPHOCYTE IMMUNE GLOBULIN
     Indication: IMMUNOSUPPRESSION
  35. METHYLPREDNISOLONE [Concomitant]
     Active Substance: METHYLPREDNISOLONE
     Indication: IMMUNOSUPPRESSION
  36. NIFEDIPINE. [Concomitant]
     Active Substance: NIFEDIPINE
  37. SEVELAMER [Concomitant]
     Active Substance: SEVELAMER
  38. CLONIDINE. [Concomitant]
     Active Substance: CLONIDINE
  39. NYSTATIN. [Concomitant]
     Active Substance: NYSTATIN
  40. POTASSIUM CHLORIDE. [Concomitant]
     Active Substance: POTASSIUM CHLORIDE
  41. ACETAMINOPHEN W/OXYCODONE [Concomitant]
     Active Substance: ACETAMINOPHEN\OXYCODONE HYDROCHLORIDE
  42. DIPHENHYDRAMINE [Concomitant]
     Active Substance: DIPHENHYDRAMINE
  43. SODIUM CHLORIDE. [Concomitant]
     Active Substance: SODIUM CHLORIDE
  44. GLYCOPYRROLATE. [Concomitant]
     Active Substance: GLYCOPYRROLATE
  45. MYCOPHENOLATE MOFETIL. [Concomitant]
     Active Substance: MYCOPHENOLATE MOFETIL
     Indication: IMMUNOSUPPRESSION
  46. BLINDED THERAPY [Suspect]
     Active Substance: UNSPECIFIED INGREDIENT
     Dosage: 21.9 ML, SINGLE
     Route: 042
     Dates: start: 20130523
  47. CARVEDILOL. [Concomitant]
     Active Substance: CARVEDILOL
  48. ATORVASTATIN [Concomitant]
     Active Substance: ATORVASTATIN
  49. AMIODARONE [Concomitant]
     Active Substance: AMIODARONE
  50. BISACODYL. [Concomitant]
     Active Substance: BISACODYL
  51. METOPROLOL [Concomitant]
     Active Substance: METOPROLOL
  52. POTASSIUM PHOSPHATE [Concomitant]
     Active Substance: POTASSIUM PHOSPHATE
  53. VALGANCICLOVIR [Concomitant]
     Active Substance: VALGANCICLOVIR
  54. ACETAMINOPHEN. [Concomitant]
     Active Substance: ACETAMINOPHEN
  55. PEPCID [Concomitant]
     Active Substance: FAMOTIDINE
  56. MULTIVITAMINS [Concomitant]
     Active Substance: VITAMINS
  57. DOCUSATE [Concomitant]
     Active Substance: DOCUSATE
  58. HYDRALAZINE [Concomitant]
     Active Substance: HYDRALAZINE HYDROCHLORIDE
  59. MAGNESIUM CHLORIDE. [Concomitant]
     Active Substance: MAGNESIUM CHLORIDE
  60. PANTOPRAZOLE [Concomitant]
     Active Substance: PANTOPRAZOLE SODIUM
  61. SULFAMETHOXAZOLE-TRIMETHOPRIM (SMZ) [Concomitant]
     Active Substance: SULFAMETHOXAZOLE\TRIMETHOPRIM
  62. PROPOFOL. [Concomitant]
     Active Substance: PROPOFOL
  63. DOPAMINE [Concomitant]
     Active Substance: DOPAMINE\DOPAMINE HYDROCHLORIDE
  64. MYCOPHENOLATE MOFETIL. [Concomitant]
     Active Substance: MYCOPHENOLATE MOFETIL
     Indication: ENZYME INDUCTION
  65. PREDNISONE. [Concomitant]
     Active Substance: PREDNISONE
     Indication: ENZYME INDUCTION
  66. TACROLIMUS. [Concomitant]
     Active Substance: TACROLIMUS
     Indication: ENZYME INDUCTION

REACTIONS (4)
  - Malnutrition [Recovered/Resolved with Sequelae]
  - Post procedural haemorrhage [Recovered/Resolved]
  - Hyperglycaemia [Recovered/Resolved]
  - Enterococcal bacteraemia [Recovered/Resolved]

NARRATIVE: CASE EVENT DATE: 20130531
